FAERS Safety Report 12179388 (Version 3)
Quarter: 2016Q3

REPORT INFORMATION
  Report Type: Spontaneous
  Country: US (occurrence: US)
  Receive Date: 20160314
  Receipt Date: 20160817
  Transmission Date: 20161109
  Serious: Yes (Life-Threatening, Hospitalization)
  Sender: FDA-Public Use
  Company Number: US-ELI_LILLY_AND_COMPANY-US201603000456

PATIENT
  Age: 58 Year
  Sex: Female

DRUGS (1)
  1. ADCIRCA [Suspect]
     Active Substance: TADALAFIL
     Indication: PULMONARY HYPERTENSION
     Dosage: 40 MG, QD
     Route: 048

REACTIONS (5)
  - Coma [Recovered/Resolved]
  - Asthenia [Unknown]
  - Dyspnoea [Unknown]
  - Lung disorder [Unknown]
  - Pneumonia [Unknown]

NARRATIVE: CASE EVENT DATE: 20160205
